FAERS Safety Report 5019238-8 (Version None)
Quarter: 2006Q2

REPORT INFORMATION
  Report Type: 
  Country: None (occurrence: None)
  Receive Date: 20060606
  Receipt Date: 20060526
  Transmission Date: 20061013
  Serious: Yes (Hospitalization)
  Sender: FDA-Public Use
  Company Number: US-JNJFOC-20060403465

PATIENT
  Sex: Male
  Weight: 55.79 kg

DRUGS (9)
  1. REMICADE [Suspect]
     Indication: CROHN'S DISEASE
     Route: 042
  2. M.V.I. [Concomitant]
  3. M.V.I. [Concomitant]
  4. M.V.I. [Concomitant]
  5. M.V.I. [Concomitant]
  6. M.V.I. [Concomitant]
  7. M.V.I. [Concomitant]
  8. M.V.I. [Concomitant]
  9. M.V.I. [Concomitant]

REACTIONS (1)
  - CYTOMEGALOVIRUS INFECTION [None]
